FAERS Safety Report 5713373-4 (Version None)
Quarter: 2008Q2

REPORT INFORMATION
  Report Type: 
  Country: None (occurrence: None)
  Receive Date: 20080422
  Receipt Date: 20080410
  Transmission Date: 20081010
  Serious: Yes (Hospitalization, Other)
  Sender: FDA-Public Use
  Company Number: US-PFIZER INC-2008016184

PATIENT
  Sex: Female

DRUGS (3)
  1. CHANTIX [Interacting]
  2. CYMBALTA [Interacting]
  3. NICOTINE [Suspect]

REACTIONS (8)
  - CHEST PAIN [None]
  - DIZZINESS [None]
  - DRUG DEPENDENCE [None]
  - DRUG INTERACTION [None]
  - FATIGUE [None]
  - FEELING ABNORMAL [None]
  - IMPAIRED DRIVING ABILITY [None]
  - NAUSEA [None]
